FAERS Safety Report 9310566 (Version 1)
Quarter: 2013Q2

REPORT INFORMATION
  Report Type: Spontaneous
  Country: US (occurrence: US)
  Receive Date: 20130527
  Receipt Date: 20130527
  Transmission Date: 20140414
  Serious: No
  Sender: FDA-Public Use
  Company Number: US-B.I. PHARMACEUTICALS,INC./RIDGEFIELD-2013-BI-14624BP

PATIENT
  Age: 69 Year
  Sex: Male

DRUGS (1)
  1. SPIRIVA [Suspect]
     Indication: CHRONIC OBSTRUCTIVE PULMONARY DISEASE
     Dosage: 18 MCG
     Route: 055
     Dates: start: 2008

REACTIONS (5)
  - Fall [Recovered/Resolved]
  - Laceration [Not Recovered/Not Resolved]
  - Tendon pain [Not Recovered/Not Resolved]
  - Infection [Not Recovered/Not Resolved]
  - Gait disturbance [Not Recovered/Not Resolved]
